FAERS Safety Report 11433381 (Version 1)
Quarter: 2015Q3

REPORT INFORMATION
  Report Type: Spontaneous
  Country: US (occurrence: None)
  Receive Date: 20150827
  Receipt Date: 20150827
  Transmission Date: 20151125
  Serious: Yes (Hospitalization)
  Sender: FDA-Public Use
  Company Number: AMAG201500896

PATIENT
  Age: 33 Year
  Sex: Female

DRUGS (2)
  1. FLAGYL [Concomitant]
     Active Substance: METRONIDAZOLE\METRONIDAZOLE HYDROCHLORIDE
  2. MAKENA [Suspect]
     Active Substance: HYDROXYPROGESTERONE CAPROATE
     Indication: PREMATURE DELIVERY
     Route: 028
     Dates: start: 20150601, end: 20150810

REACTIONS (2)
  - Maternal drugs affecting foetus [None]
  - Amniotic fluid volume increased [None]

NARRATIVE: CASE EVENT DATE: 20150811
